FAERS Safety Report 5128844-1 (Version None)
Quarter: 2006Q4

REPORT INFORMATION
  Report Type: 
  Country: None (occurrence: None)
  Receive Date: 20061017
  Receipt Date: 20061006
  Transmission Date: 20070319
  Serious: Yes (Death, Other)
  Sender: FDA-Public Use
  Company Number: JP-JNJFOC-20060805289

PATIENT
  Sex: Male

DRUGS (13)
  1. ITRIZOLE [Suspect]
     Indication: NAIL TINEA
     Route: 048
  2. GASTOR [Concomitant]
     Indication: DUODENAL ULCER
     Route: 048
  3. GLUCOBAY [Concomitant]
     Indication: DIABETES MELLITUS
     Route: 048
  4. ACTOS [Concomitant]
     Indication: DIABETES MELLITUS
     Route: 048
  5. PANALDINE [Concomitant]
     Indication: CEREBRAL INFARCTION
     Route: 048
  6. CALSLOT [Concomitant]
     Indication: HYPERTENSION
     Route: 048
  7. FLIVAS [Concomitant]
     Indication: NEUROGENIC BLADDER
     Route: 048
  8. FLIVAS [Concomitant]
     Indication: BENIGN PROSTATIC HYPERPLASIA
     Route: 048
  9. UBRETID [Concomitant]
     Indication: NEUROGENIC BLADDER
     Route: 048
  10. UBRETID [Concomitant]
     Indication: BENIGN PROSTATIC HYPERPLASIA
     Route: 048
  11. CEFZON [Concomitant]
     Indication: CELLULITIS
     Route: 048
  12. CLARITHROMYCIN [Concomitant]
     Indication: CELLULITIS
     Route: 048
  13. PALUX [Concomitant]
     Indication: DIABETIC DERMOPATHY
     Route: 065

REACTIONS (1)
  - PNEUMONIA [None]
